FAERS Safety Report 7823903-4 (Version None)
Quarter: 2011Q4

REPORT INFORMATION
  Report Type: 
  Country: None (occurrence: None)
  Receive Date: 20111019
  Receipt Date: 20111010
  Transmission Date: 20120403
  Serious: Yes (Death, Other)
  Sender: FDA-Public Use
  Company Number: FR-CELGENEUS-056-50794-11040273

PATIENT
  Sex: Male
  Weight: 68 kg

DRUGS (12)
  1. VIDAZA [Suspect]
     Indication: ACUTE MYELOID LEUKAEMIA
     Dosage: 75 MILLIGRAM
     Route: 058
     Dates: start: 20101201
  2. DIFRAREL [Concomitant]
     Dosage: 100 MILLIGRAM
     Route: 065
  3. PREDNISONE [Concomitant]
     Indication: BRONCHOPNEUMOPATHY
     Dosage: 30 MILLIGRAM
     Route: 065
     Dates: start: 20110213, end: 20110220
  4. AUGMENTIN '125' [Concomitant]
     Indication: BRONCHOPNEUMOPATHY
     Dosage: 3 GRAM
     Route: 065
     Dates: start: 20110213, end: 20110219
  5. VIDAZA [Suspect]
     Dosage: 75 MILLIGRAM
     Route: 058
     Dates: start: 20110101
  6. VIDAZA [Suspect]
     Dosage: 75 MILLIGRAM
     Route: 058
     Dates: start: 20110301
  7. LAMALINE [Concomitant]
     Route: 065
  8. ACETAMINOPHEN [Concomitant]
     Dosage: 3000 MILLIGRAM
     Route: 065
     Dates: start: 20110309
  9. CEFIXIME [Concomitant]
     Indication: BRONCHOPNEUMOPATHY
     Dosage: 400 MILLIGRAM
     Route: 065
     Dates: start: 20110221, end: 20110228
  10. VIDAZA [Suspect]
     Dosage: 75 MILLIGRAM
     Route: 058
     Dates: start: 20110307, end: 20110311
  11. OFLOXACIN [Concomitant]
     Indication: PROSTATITIS
     Dosage: 200 MILLIGRAM
     Route: 065
     Dates: start: 20110101
  12. ALLOPURINOL [Concomitant]
     Route: 065

REACTIONS (9)
  - ABSCESS LIMB [None]
  - MYOSITIS [None]
  - CELLULITIS [None]
  - ACUTE MYELOID LEUKAEMIA [None]
  - THROMBOCYTOPENIA [None]
  - NEUTROPENIA [None]
  - HAEMATOMA INFECTION [None]
  - SPONTANEOUS HAEMATOMA [None]
  - SEPTIC SHOCK [None]
